FAERS Safety Report 23565878 (Version 1)
Quarter: 2024Q1

REPORT INFORMATION
  Report Type: Spontaneous
  Country: CZ (occurrence: CZ)
  Receive Date: 20240226
  Receipt Date: 20240226
  Transmission Date: 20240409
  Serious: Yes (Hospitalization, Other)
  Sender: FDA-Public Use
  Company Number: CZ-002147023-NVSC2023CZ115029

PATIENT
  Age: 59 Year
  Sex: Male

DRUGS (4)
  1. CYCLOPHOSPHAMIDE [Suspect]
     Active Substance: CYCLOPHOSPHAMIDE
     Indication: Waldenstrom^s macroglobulinaemia
     Dosage: 750 MG/M2, ONCE EVERY 14 DAYS (TOTAL OF 5 CYCLES)
     Route: 065
     Dates: start: 201809, end: 201903
  2. DEXAMETHASONE [Suspect]
     Active Substance: DEXAMETHASONE
     Indication: Waldenstrom^s macroglobulinaemia
     Dosage: 40 MG, QW (TOTAL OF 5 CYCLES)
     Route: 065
     Dates: start: 201809, end: 201903
  3. RITUXIMAB [Suspect]
     Active Substance: RITUXIMAB
     Indication: Waldenstrom^s macroglobulinaemia
     Dosage: 375 MG/M2, Q4W (TOTAL OF 5 CYCLES)
     Route: 042
     Dates: start: 201809, end: 201902
  4. RITUXIMAB [Suspect]
     Active Substance: RITUXIMAB
     Dosage: 375 MG/M2
     Route: 042
     Dates: start: 201809, end: 201903

REACTIONS (8)
  - Upper respiratory tract infection [Recovered/Resolved]
  - Pneumococcal infection [Recovered/Resolved]
  - Off label use [Unknown]
  - Hypogammaglobulinaemia [Unknown]
  - Blood immunoglobulin G decreased [Unknown]
  - Pneumonia [Unknown]
  - Therapy partial responder [Unknown]
  - Intentional product use issue [Unknown]
